FAERS Safety Report 8010293-X (Version None)
Quarter: 2011Q4

REPORT INFORMATION
  Report Type: 
  Country: None (occurrence: None)
  Receive Date: 20111221
  Receipt Date: 20111214
  Transmission Date: 20120403
  Serious: Yes (Hospitalization, Other)
  Sender: FDA-Public Use
  Company Number: 2011SP035868

PATIENT
  Age: 53 Year
  Sex: Female
  Weight: 72.5755 kg

DRUGS (1)
  1. NUVARING [Suspect]
     Indication: HAEMORRHAGE
     Dates: start: 20081201, end: 20090201

REACTIONS (45)
  - VARICOSE VEIN [None]
  - HEART RATE IRREGULAR [None]
  - PRURITUS [None]
  - INFECTION PARASITIC [None]
  - UTERINE POLYP [None]
  - NERVE COMPRESSION [None]
  - FLANK PAIN [None]
  - DIVERTICULUM INTESTINAL [None]
  - SOFT TISSUE MASS [None]
  - BREAST CALCIFICATIONS [None]
  - DEPRESSION [None]
  - UTERINE LEIOMYOMA [None]
  - HYPERCOAGULATION [None]
  - VISION BLURRED [None]
  - SKIN DISCOLOURATION [None]
  - ENDOMETRIAL HYPERTROPHY [None]
  - THROMBOSIS [None]
  - INTERNATIONAL NORMALISED RATIO INCREASED [None]
  - FIBRIN D DIMER INCREASED [None]
  - DEEP VEIN THROMBOSIS [None]
  - PNEUMONIA [None]
  - DYSPHAGIA [None]
  - HAEMATURIA [None]
  - PARAESTHESIA [None]
  - HEADACHE [None]
  - ENDOMETRIAL NEOPLASM [None]
  - ENDOMETRIAL DISORDER [None]
  - INCORRECT DRUG ADMINISTRATION DURATION [None]
  - PAIN [None]
  - CALCULUS URINARY [None]
  - FIBROADENOMA OF BREAST [None]
  - PALPITATIONS [None]
  - ANAEMIA [None]
  - MALAISE [None]
  - DYSURIA [None]
  - PULMONARY EMBOLISM [None]
  - MIGRAINE [None]
  - SOMATOFORM DISORDER SKIN [None]
  - MENORRHAGIA [None]
  - DECREASED ACTIVITY [None]
  - PLATELET COUNT INCREASED [None]
  - ANGIOPATHY [None]
  - DERMATITIS ATOPIC [None]
  - THROMBOPHLEBITIS SUPERFICIAL [None]
  - BACK PAIN [None]
